FAERS Safety Report 8853482 (Version 4)
Quarter: 2013Q3

REPORT INFORMATION
  Report Type: Spontaneous
  Country: CA (occurrence: CA)
  Receive Date: 20121022
  Receipt Date: 20130730
  Transmission Date: 20140515
  Serious: No
  Sender: FDA-Public Use
  Company Number: CA-B.I. PHARMACEUTICALS,INC./RIDGEFIELD-2012-BP-25995BP

PATIENT
  Sex: Male
  Weight: 92.08 kg

DRUGS (1)
  1. MIRAPEX [Suspect]
     Indication: PARKINSON^S DISEASE
     Route: 048
     Dates: start: 199812, end: 200302

REACTIONS (1)
  - Pathological gambling [Unknown]
